FAERS Safety Report 20998146 (Version 1)
Quarter: 2022Q2

REPORT INFORMATION
  Report Type: Spontaneous
  Country: IT (occurrence: IT)
  Receive Date: 20220623
  Receipt Date: 20220623
  Transmission Date: 20220721
  Serious: Yes (Hospitalization)
  Sender: FDA-Public Use
  Company Number: IT-MYLANLABS-2022M1047651

PATIENT
  Age: 85 Year
  Sex: Female

DRUGS (2)
  1. QUETIAPINE [Suspect]
     Active Substance: QUETIAPINE
     Indication: Vascular dementia
     Dosage: 300 MILLIGRAM, QD
     Route: 065
  2. QUETIAPINE [Suspect]
     Active Substance: QUETIAPINE
     Indication: Behaviour disorder
     Dosage: 600 MILLIGRAM, QD
     Route: 065

REACTIONS (3)
  - Incorrect dosage administered [Recovered/Resolved]
  - Myoclonus [Recovered/Resolved]
  - Off label use [Unknown]
